FAERS Safety Report 9135458 (Version 1)
Quarter: 2013Q1

REPORT INFORMATION
  Report Type: Spontaneous
  Country: US (occurrence: US)
  Receive Date: 20130219
  Receipt Date: 20130219
  Transmission Date: 20140127
  Serious: No
  Sender: FDA-Public Use
  Company Number: US-BRISTOL-MYERS SQUIBB COMPANY-16455115

PATIENT
  Age: 48 Year
  Sex: Female

DRUGS (12)
  1. ORENCIA [Suspect]
  2. COMPAZINE [Concomitant]
  3. METHOTREXATE [Concomitant]
  4. FOLIC ACID [Concomitant]
  5. ZOLOFT [Concomitant]
  6. PROCARDIA XL [Concomitant]
  7. OXYCODONE [Concomitant]
  8. PERCOCET [Concomitant]
  9. FLEXERIL [Concomitant]
  10. KLONOPIN [Concomitant]
  11. RANITIDINE [Concomitant]
  12. PEPCID [Concomitant]

REACTIONS (4)
  - Nausea [Unknown]
  - Vomiting [Unknown]
  - Dysgeusia [Unknown]
  - Oropharyngeal pain [Unknown]
